FAERS Safety Report 9689308 (Version 3)
Quarter: 2013Q4

REPORT INFORMATION
  Report Type: Report from Study
  Country: JP (occurrence: JP)
  Receive Date: 20131114
  Receipt Date: 20131209
  Transmission Date: 20140711
  Serious: Yes (Life-Threatening)
  Sender: FDA-Public Use
  Company Number: JP-CUBIST PHARMACEUTICAL, INC.-2013CBST000992

PATIENT
  Sex: 0

DRUGS (16)
  1. CUBICIN [Suspect]
     Indication: SKIN INFECTION
     Dosage: 6 MG/KG, UNK, ONCE A DAY
     Route: 041
     Dates: start: 20130805, end: 20130825
  2. CIPROXAN [Concomitant]
     Indication: SKIN INFECTION
     Dosage: 600 MG, QD
     Route: 048
     Dates: start: 20130723, end: 20130804
  3. FINIBAX [Concomitant]
     Indication: PRODUCT USED FOR UNKNOWN INDICATION
     Dosage: 1 G, TID
     Route: 051
     Dates: start: 20130805
  4. FUNGUARD [Concomitant]
     Indication: PROPHYLAXIS
     Dosage: 100 MG, UNK, ONCE A DAY
     Route: 051
     Dates: start: 20030729, end: 20130806
  5. FLUDARA [Concomitant]
     Indication: PRODUCT USED FOR UNKNOWN INDICATION
     Dosage: 54 MG, UNK, ONCE A DAY
     Route: 051
     Dates: start: 20130731, end: 20130805
  6. PRODIF [Concomitant]
     Indication: PROPHYLAXIS
     Dosage: 400 MG, UNK, ONCE A DAY
     Route: 051
     Dates: start: 20130808, end: 20130822
  7. PROGRAF [Concomitant]
     Indication: PROPHYLAXIS
     Dosage: 2.1 MG, UNK, ONCE A DAY
     Route: 051
     Dates: start: 20130807
  8. GRAN [Concomitant]
     Indication: PROPHYLAXIS
     Dosage: 525 ??G, UNK, ONCE A DAY
     Route: 051
     Dates: start: 20130814, end: 20130902
  9. ACICLOVIN [Concomitant]
     Indication: PROPHYLAXIS
     Dosage: 250 MG, UNK, ONCE A DAY
     Route: 051
     Dates: start: 20130823, end: 20130908
  10. VIRUHEXAL [Concomitant]
     Indication: PROPHYLAXIS
     Dosage: 200 MG, TID
     Route: 048
     Dates: start: 20130805, end: 20130822
  11. VANCOMYCIN HYDROCHLORIDE [Concomitant]
     Indication: PROPHYLAXIS
     Dosage: 250 MG, QID
     Route: 048
     Dates: start: 20130806, end: 20130823
  12. PARIET [Concomitant]
     Indication: PROPHYLAXIS
     Dosage: 10 MG, UNK, ONCE A DAY
     Route: 048
     Dates: start: 20130201
  13. PREDONINE                          /00016201/ [Concomitant]
     Indication: PRODUCT USED FOR UNKNOWN INDICATION
     Dosage: 5 MG, BID
     Route: 048
     Dates: start: 20130312
  14. BIO-THREE [Concomitant]
     Indication: PROPHYLAXIS
     Dosage: 1 G, TID
     Route: 048
     Dates: start: 20130227
  15. MAGMITT [Concomitant]
     Indication: PROPHYLAXIS
     Dosage: 330 MG, TID
     Route: 048
     Dates: start: 20130327, end: 20130807
  16. URSO                               /00465701/ [Concomitant]
     Indication: PROPHYLAXIS
     Dosage: 100 MG, TID
     Route: 048
     Dates: start: 20130731

REACTIONS (2)
  - Pneumonia [Recovered/Resolved]
  - Overdose [Unknown]
